FAERS Safety Report 5059939-9 (Version None)
Quarter: 2006Q2

REPORT INFORMATION
  Report Type: 
  Country: None (occurrence: None)
  Receive Date: 20060630
  Receipt Date: 20060410
  Transmission Date: 20061013
  Serious: Yes (Other)
  Sender: FDA-Public Use
  Company Number: A03200602198

PATIENT
  Age: 67 Year
  Sex: Female

DRUGS (4)
  1. AMBIEN [Suspect]
     Indication: INSOMNIA
     Dosage: 12.5 MG ONCE - ORAL
     Route: 048
     Dates: start: 20060406, end: 20060406
  2. CLOPIDOGREL BISULFATE [Concomitant]
  3. PREDNISONE [Concomitant]
  4. NON-STEROIDAL ANTI-INFLAMMATORY [Concomitant]

REACTIONS (5)
  - AMNESIA [None]
  - EATING DISORDER [None]
  - HALLUCINATION, VISUAL [None]
  - IMPAIRED DRIVING ABILITY [None]
  - SLEEP WALKING [None]
